FAERS Safety Report 18273052 (Version 1)
Quarter: 2020Q3

REPORT INFORMATION
  Report Type: Spontaneous
  Country: US (occurrence: US)
  Receive Date: 20200916
  Receipt Date: 20200916
  Transmission Date: 20201103
  Serious: Yes (Other)
  Sender: FDA-Public Use
  Company Number: None

PATIENT
  Age: 38 Year
  Sex: Female
  Weight: 65.25 kg

DRUGS (2)
  1. GAMMAGARD [Suspect]
     Active Substance: HUMAN IMMUNOGLOBULIN G
     Indication: POLYMYOSITIS
     Dosage: ?          OTHER FREQUENCY:3 DAYS Q3WEEKS;?
     Route: 042
     Dates: start: 20200820, end: 20200822
  2. GAMMAGARD [Suspect]
     Active Substance: HUMAN IMMUNOGLOBULIN G
     Indication: POLYMYOSITIS
     Dosage: ?          OTHER FREQUENCY:3 DAYS Q3WEEKS;?
     Route: 042
     Dates: start: 20200820, end: 20200822

REACTIONS (1)
  - Subclavian artery thrombosis [None]

NARRATIVE: CASE EVENT DATE: 20200825
